FAERS Safety Report 9165821 (Version 1)
Quarter: 2013Q1

REPORT INFORMATION
  Report Type: Spontaneous
  Country: CA (occurrence: CA)
  Receive Date: 20130315
  Receipt Date: 20130315
  Transmission Date: 20140127
  Serious: Yes (Death, Other)
  Sender: FDA-Public Use
  Company Number: PHHY2012CA113910

PATIENT
  Sex: Male

DRUGS (12)
  1. CLOMIPRAMINE [Suspect]
     Indication: OBSESSIVE-COMPULSIVE DISORDER
     Dosage: 25 MG, DAILY
     Route: 048
  2. CLOMIPRAMINE [Suspect]
     Dosage: 100 MG, DAILY
     Route: 048
  3. PAROXETINE [Suspect]
     Dosage: 5 MG, PER DAY
  4. PAROXETINE [Suspect]
     Dosage: 10 MG, PER DAY
  5. SERTRALINE [Suspect]
     Indication: COMPULSIONS
  6. OLANZAPINE [Suspect]
     Dosage: 15 MG, DAILY
     Route: 048
  7. VALPROIC ACID [Concomitant]
  8. QUETIAPINE [Concomitant]
     Dosage: 25 MG, DAILY
  9. CITALOPRAM [Concomitant]
     Dosage: 10 MG, QD
     Route: 048
  10. CITALOPRAM [Concomitant]
     Dosage: 10 MG, BID
     Route: 048
  11. ESCITALOPRAM [Concomitant]
     Dosage: 10 MG, DAILY
  12. HALOPERIDOL [Concomitant]
     Dosage: 1 MG, DAILY

REACTIONS (9)
  - Death [Fatal]
  - Parkinsonism [Unknown]
  - Resting tremor [Unknown]
  - Cogwheel rigidity [Unknown]
  - Bradykinesia [Unknown]
  - Confusional state [Unknown]
  - Drug intolerance [Unknown]
  - Hyperhidrosis [Unknown]
  - Abdominal pain upper [Unknown]
